FAERS Safety Report 12773495 (Version 1)
Quarter: 2016Q3

REPORT INFORMATION
  Report Type: Report from Study
  Country: JP (occurrence: JP)
  Receive Date: 20160922
  Receipt Date: 20160922
  Transmission Date: 20161109
  Serious: Yes (Other)
  Sender: FDA-Public Use
  Company Number: JP-BRISTOL-MYERS SQUIBB COMPANY-BMS-2016-075461

PATIENT
  Age: 85 Year
  Sex: Male
  Weight: 65 kg

DRUGS (9)
  1. MAINTATE [Concomitant]
     Active Substance: BISOPROLOL FUMARATE
     Indication: PRODUCT USED FOR UNKNOWN INDICATION
     Dosage: 2.5 MG, QD
     Route: 048
     Dates: start: 20160502
  2. BISOPROLOL                         /00802602/ [Concomitant]
     Active Substance: BISOPROLOL
     Indication: DIZZINESS
     Dosage: 1.25 MG, UNK
     Route: 048
     Dates: start: 20160503
  3. URIEF [Suspect]
     Active Substance: SILODOSIN
     Indication: BENIGN PROSTATIC HYPERPLASIA
     Dosage: 8 MG, BID
     Route: 048
     Dates: end: 20160620
  4. APIXABAN [Suspect]
     Active Substance: APIXABAN
     Indication: CEREBROVASCULAR ACCIDENT PROPHYLAXIS
     Dosage: 5 MG, BID
     Route: 048
     Dates: start: 20160726
  5. CEPHADOL [Concomitant]
     Active Substance: DIPHENIDOL HYDROCHLORIDE
     Indication: DIZZINESS
     Dosage: 75 MG, QD
     Route: 048
  6. MERISLON [Concomitant]
     Active Substance: BETAHISTINE MESILATE
     Indication: DIZZINESS
     Dosage: 18 MG, DAILY
     Route: 048
  7. DETANTOL R [Concomitant]
     Active Substance: BUNAZOSIN HYDROCHLORIDE
     Indication: HYPERTENSION
     Dosage: 6 MG, QD
     Route: 048
  8. PREMINENT [Concomitant]
     Active Substance: HYDROCHLOROTHIAZIDE\LOSARTAN POTASSIUM
     Indication: HYPERTENSION
     Dosage: 1 TAB, QD
     Route: 048
  9. ADETPHOS [Concomitant]
     Active Substance: ADENOSINE TRIPHOSPHATE
     Indication: DIZZINESS
     Dosage: 120 MG, DAILY
     Route: 048

REACTIONS (5)
  - Dizziness [Recovered/Resolved]
  - Decreased appetite [Not Recovered/Not Resolved]
  - Duodenal neoplasm [Unknown]
  - Oesophageal candidiasis [Unknown]
  - Chronic gastritis [Unknown]

NARRATIVE: CASE EVENT DATE: 20160421
